FAERS Safety Report 17342104 (Version 2)
Quarter: 2020Q1

REPORT INFORMATION
  Report Type: Spontaneous
  Country: US (occurrence: US)
  Receive Date: 20200129
  Receipt Date: 20200310
  Transmission Date: 20200409
  Serious: No
  Sender: FDA-Public Use
  Company Number: US-ASTRAZENECA-2020SE01337

PATIENT
  Sex: Female
  Weight: 104.2 kg

DRUGS (2)
  1. BYDUREON BCISE [Suspect]
     Active Substance: EXENATIDE
     Route: 065
  2. BYDUREON [Suspect]
     Active Substance: EXENATIDE
     Route: 065

REACTIONS (4)
  - Product dispensing error [Unknown]
  - Weight decreased [Not Recovered/Not Resolved]
  - Device leakage [Unknown]
  - Incorrect dose administered by device [Not Recovered/Not Resolved]
